FAERS Safety Report 6516108-0 (Version None)
Quarter: 2009Q4

REPORT INFORMATION
  Report Type: 
  Country: None (occurrence: None)
  Receive Date: 20091223
  Receipt Date: 20091217
  Transmission Date: 20100525
  Serious: Yes (Other)
  Sender: FDA-Public Use
  Company Number: GB-JNJFOC-20090405360

PATIENT
  Sex: Female
  Weight: 74 kg

DRUGS (2)
  1. SPORANOX [Suspect]
     Indication: VULVOVAGINAL CANDIDIASIS
     Route: 048
  2. SPORANOX [Suspect]
     Route: 048

REACTIONS (2)
  - ABORTION SPONTANEOUS [None]
  - DRUG EXPOSURE DURING PREGNANCY [None]
